FAERS Safety Report 16064851 (Version 4)
Quarter: 2019Q3

REPORT INFORMATION
  Report Type: Report from Study
  Country: None (occurrence: US)
  Receive Date: 20190312
  Receipt Date: 20190910
  Transmission Date: 20191004
  Serious: Yes (Other)
  Sender: FDA-Public Use
  Company Number: US-ABBVIE-19K-163-2698768-00

PATIENT
  Age: 71 Year
  Sex: Male
  Weight: 73.09 kg

DRUGS (6)
  1. SUSTIVA [Concomitant]
     Active Substance: EFAVIRENZ
     Indication: HIV INFECTION
  2. HUMIRA [Suspect]
     Active Substance: ADALIMUMAB
     Indication: PSORIASIS
     Route: 058
     Dates: start: 201903, end: 2019
  3. HUMIRA [Suspect]
     Active Substance: ADALIMUMAB
     Indication: PSORIATIC ARTHROPATHY
     Route: 058
     Dates: start: 20150504, end: 201901
  4. ENALAPRIL [Concomitant]
     Active Substance: ENALAPRIL
     Indication: HYPERTENSION
  5. ATENOLOL. [Concomitant]
     Active Substance: ATENOLOL
     Indication: HYPERTENSION
  6. DESCOVY [Concomitant]
     Active Substance: EMTRICITABINE\TENOFOVIR ALAFENAMIDE FUMARATE
     Indication: HIV INFECTION

REACTIONS (16)
  - Cataract [Recovered/Resolved]
  - Neoplasm skin [Recovered/Resolved]
  - Mobility decreased [Recovered/Resolved]
  - Axillary mass [Recovered/Resolved]
  - Axillary pain [Recovered/Resolved]
  - Axillary mass [Recovered/Resolved]
  - Neoplasm [Recovering/Resolving]
  - Pain [Unknown]
  - Psoriasis [Not Recovered/Not Resolved]
  - Weight increased [Unknown]
  - Skin discolouration [Unknown]
  - Infection [Recovering/Resolving]
  - Subcutaneous abscess [Recovered/Resolved]
  - Decreased appetite [Recovering/Resolving]
  - Wound secretion [Recovered/Resolved]
  - Psoriatic arthropathy [Unknown]

NARRATIVE: CASE EVENT DATE: 2017
